FAERS Safety Report 8423853-9 (Version None)
Quarter: 2012Q2

REPORT INFORMATION
  Report Type: 
  Country: None (occurrence: None)
  Receive Date: 20120608
  Receipt Date: 20111206
  Transmission Date: 20120825
  Serious: No
  Sender: FDA-Public Use
  Company Number: US-ASTRAZENECA-2011SE00885

PATIENT
  Age: 66 Year
  Sex: Female

DRUGS (12)
  1. SEROQUEL XR [Suspect]
     Indication: ANTIDEPRESSANT THERAPY
     Route: 048
     Dates: start: 20101201
  2. ESTRADIOL PATCH [Concomitant]
     Dosage: WEEK
  3. CELEXA [Concomitant]
  4. CITALOPRAM HYDROBROMIDE [Concomitant]
  5. NEXIUM [Suspect]
     Indication: GASTROOESOPHAGEAL REFLUX DISEASE
     Route: 048
     Dates: start: 20110302
  6. SEROQUEL XR [Suspect]
     Indication: INSOMNIA
     Route: 048
     Dates: start: 20101201
  7. ATACAND [Suspect]
     Indication: HYPERTENSION
     Route: 048
     Dates: start: 20060101, end: 20110503
  8. SEROQUEL XR [Suspect]
     Indication: SLEEP DISORDER
     Route: 048
     Dates: start: 20101201
  9. ALPRAZOLAM [Concomitant]
     Dosage: AT NIGHT
  10. DOCUSATE [Concomitant]
  11. LEVOTHYROXINE SODIUM [Concomitant]
  12. PROTONIX [Concomitant]

REACTIONS (8)
  - DEPRESSION [None]
  - CONSTIPATION [None]
  - COUGH [None]
  - THERAPEUTIC RESPONSE UNEXPECTED [None]
  - HIATUS HERNIA [None]
  - THROAT IRRITATION [None]
  - DRY MOUTH [None]
  - OFF LABEL USE [None]
